FAERS Safety Report 6115947-8 (Version None)
Quarter: 2009Q1

REPORT INFORMATION
  Report Type: 
  Country: None (occurrence: None)
  Receive Date: 20090314
  Receipt Date: 20081219
  Transmission Date: 20090719
  Serious: No
  Sender: FDA-Public Use
  Company Number: PR-ABBOTT-08P-131-0494511-00

PATIENT
  Sex: Male
  Weight: 81.72 kg

DRUGS (8)
  1. HUMIRA [Suspect]
     Indication: RHEUMATOID ARTHRITIS
     Dosage: 1 PEN
     Route: 058
     Dates: start: 20081121, end: 20081208
  2. NORVASC [Concomitant]
     Indication: HYPERTENSION
     Dosage: 1 TABLET DAILY
     Route: 048
  3. LISINOPRIL [Concomitant]
     Indication: HYPERTENSION
     Dosage: 1 - 20 MILLIGRAM TABLETS DAILY
     Route: 048
  4. SIMVASTATIN [Concomitant]
     Indication: HYPERTENSION
     Dosage: 1 - 40 MILLIGRAM TABLETS DAILY
     Route: 048
  5. COREG [Concomitant]
     Indication: HYPERTENSION
     Dosage: 2 - 25 MILLIGRAM TABLETS TWICE DAILY
     Route: 048
  6. AVALIDE [Concomitant]
     Indication: HYPERTENSION
     Dosage: 1 - 300/25 MILLIGRAM TABLET DAILY
     Route: 048
  7. CENTRUM [Concomitant]
     Indication: NUTRITIONAL SUPPORT
     Route: 048
  8. ASCORBIC ACID [Concomitant]
     Indication: NUTRITIONAL SUPPORT
     Dosage: 1 - 1000 MILLIGRAM TABLET DAILY
     Route: 048

REACTIONS (4)
  - RHINORRHOEA [None]
  - SINUS HEADACHE [None]
  - SINUSITIS [None]
  - SNEEZING [None]
